FAERS Safety Report 7038303-7 (Version None)
Quarter: 2010Q4

REPORT INFORMATION
  Report Type: 
  Country: None (occurrence: None)
  Receive Date: 20101011
  Receipt Date: 20100105
  Transmission Date: 20110411
  Serious: No
  Sender: FDA-Public Use
  Company Number: US-PFIZER INC-2010002133

PATIENT
  Sex: Female

DRUGS (8)
  1. NEURONTIN [Suspect]
     Indication: PAIN
     Dosage: 100MG, EVERY 8 HOURS, AS NEEDED
     Route: 048
  2. SYNTHROID [Concomitant]
     Indication: THYROID DISORDER
     Dosage: 88 MCG
     Route: 048
  3. AMBIEN [Concomitant]
     Indication: INSOMNIA
     Dosage: 5 MG, AS NEEDED
     Route: 048
  4. VITAMIN D [Concomitant]
     Dosage: UNK
     Route: 048
  5. NEXIUM [Concomitant]
     Indication: GASTROINTESTINAL DISORDER
     Dosage: 40 MG, 2X/DAY
     Route: 048
  6. LEVSIN [Concomitant]
     Indication: GASTRIC DISORDER
     Dosage: 0.125 MG, 4X/DAY
     Route: 048
  7. ATACAND [Concomitant]
     Indication: HYPERTENSION
     Dosage: 4 MG, 1X/DAY
     Route: 048
  8. TRAZODONE [Concomitant]
     Indication: DEPRESSION
     Dosage: 50 MG, 1X/DAY
     Route: 048

REACTIONS (1)
  - DRUG INEFFECTIVE [None]
